FAERS Safety Report 4536459-9 (Version None)
Quarter: 2004Q4

REPORT INFORMATION
  Report Type: 
  Country: None (occurrence: None)
  Receive Date: 20041220
  Receipt Date: 20041213
  Transmission Date: 20050328
  Serious: Yes (Death, Life-Threatening, Hospitalization)
  Sender: FDA-Public Use
  Company Number: PERC20040076

PATIENT
  Age: 44 Year
  Sex: Male

DRUGS (4)
  1. PERCOCET [Suspect]
     Dosage: PO
     Route: 048
     Dates: start: 20030101, end: 20030101
  2. ZOLPIDEM [Suspect]
     Dosage: OTHR
     Route: 050
     Dates: start: 20030101, end: 20030101
  3. METHADONE HCL [Suspect]
     Dosage: PO
     Route: 048
     Dates: start: 20030101, end: 20030101
  4. BENZODIAZEPINE [Suspect]
     Dosage: PO
     Route: 048
     Dates: start: 20030101, end: 20030101

REACTIONS (7)
  - ANOXIC ENCEPHALOPATHY [None]
  - CARDIAC ARREST [None]
  - COMA [None]
  - COMPLETED SUICIDE [None]
  - DRUG SCREEN POSITIVE [None]
  - MULTIPLE DRUG OVERDOSE [None]
  - THERAPY NON-RESPONDER [None]
